FAERS Safety Report 13706028 (Version 1)
Quarter: 2017Q2

REPORT INFORMATION
  Report Type: Spontaneous
  Country: LB (occurrence: LB)
  Receive Date: 20170630
  Receipt Date: 20170630
  Transmission Date: 20170830
  Serious: Yes (Death, Other)
  Sender: FDA-Public Use
  Company Number: LB-FRESENIUS KABI-FK201705502

PATIENT
  Age: 72 Year
  Sex: Female
  Weight: 88.9 kg

DRUGS (2)
  1. FLUOROURACIL (MANUFACTURER UNKNOWN) [Suspect]
     Active Substance: FLUOROURACIL
     Indication: OESOPHAGEAL CANCER METASTATIC
     Route: 065
  2. CISPLATIN. [Concomitant]
     Active Substance: CISPLATIN
     Indication: OESOPHAGEAL CANCER METASTATIC

REACTIONS (3)
  - Off label use [Unknown]
  - Hepatitis fulminant [Fatal]
  - Medication error [Unknown]
